FAERS Safety Report 4366207-7 (Version None)
Quarter: 2004Q2

REPORT INFORMATION
  Report Type: 
  Country: None (occurrence: None)
  Receive Date: 20040527
  Receipt Date: 20040219
  Transmission Date: 20050107
  Serious: No
  Sender: FDA-Public Use
  Company Number: US-BRISTOL-MYERS SQUIBB COMPANY-12514667

PATIENT
  Sex: Male
  Weight: 131 kg

DRUGS (2)
  1. DEFINITY [Suspect]
     Indication: CARDIAC STRESS TEST
     Dosage: DILUTED BOLUS
     Route: 040
     Dates: start: 20040219, end: 20040219
  2. ATROPINE [Concomitant]
     Route: 042
     Dates: start: 20040219, end: 20040219

REACTIONS (1)
  - BACK PAIN [None]
